FAERS Safety Report 8921452 (Version 1)
Quarter: 2012Q4

REPORT INFORMATION
  Report Type: 
  Country: FR (occurrence: FR)
  Receive Date: 20121121
  Receipt Date: 20121121
  Transmission Date: 20130627
  Serious: Yes (Hospitalization)
  Sender: FDA-Public Use
  Company Number: FR-ROCHE-236431

PATIENT
  Age: 78 Year
  Sex: Male

DRUGS (1)
  1. ROCEPHINE [Suspect]
     Indication: BRONCHITIS
     Route: 030
     Dates: start: 20000308, end: 20000313

REACTIONS (1)
  - Renal failure acute [Recovering/Resolving]
